FAERS Safety Report 10048895 (Version 1)
Quarter: 2014Q1

REPORT INFORMATION
  Report Type: Spontaneous
  Country: US (occurrence: US)
  Receive Date: 20140331
  Receipt Date: 20140331
  Transmission Date: 20141002
  Serious: No
  Sender: FDA-Public Use
  Company Number: US-PFIZER INC-2014087586

PATIENT
  Age: 50 Year
  Sex: Female
  Weight: 87 kg

DRUGS (18)
  1. GABAPENTIN [Suspect]
     Indication: NEUROPATHY PERIPHERAL
     Dosage: 300 MG, 4X/DAY
     Dates: start: 2013, end: 201312
  2. TEMAZEPAM [Concomitant]
     Dosage: 15 MG, 2X/DAY
  3. VITAMIN D3 [Concomitant]
     Dosage: 5000 IU, UNK
  4. POLYETHYLENE GLYCOL [Concomitant]
     Dosage: 17 G, 2X/DAY
  5. VITAMIN B12 [Concomitant]
     Dosage: UNK, MONTHLY
  6. VITAMIN D2 [Concomitant]
     Dosage: UNK
  7. SERTRALINE [Concomitant]
     Dosage: UNK, DAILY
  8. PREDNISONE [Concomitant]
     Dosage: 5 MG, 1X/DAY
  9. ONDANSETRON [Concomitant]
     Dosage: 8 MG, AS NEEDED
  10. OMEPRAZOLE [Concomitant]
     Dosage: 20 MG, UNK
  11. NABUMETONE [Concomitant]
     Dosage: 500 MG, 2X/DAY
  12. METOPROLOL [Concomitant]
     Dosage: 25 MG, 2X/DAY
  13. FUROSEMIDE [Concomitant]
     Dosage: 40 MG, 1X/DAY
  14. FOLIC ACID [Concomitant]
     Dosage: 1 MG, 2X/DAY
  15. FAMOTIDINE [Concomitant]
     Dosage: 20 MG, 2X/DAY
  16. BENADRYL [Concomitant]
     Dosage: UNK
  17. CALCITRIOL [Concomitant]
     Dosage: 0.5 UG, 1X/DAY
  18. HYDROCORTISONE [Concomitant]
     Dosage: UNK

REACTIONS (1)
  - Neuropathy peripheral [Unknown]
